FAERS Safety Report 7685671-9 (Version None)
Quarter: 2011Q3

REPORT INFORMATION
  Report Type: 
  Country: None (occurrence: None)
  Receive Date: 20110815
  Receipt Date: 20110815
  Transmission Date: 20111222
  Serious: Yes (Other)
  Sender: FDA-Public Use
  Company Number: None

PATIENT
  Sex: Female
  Weight: 74.3899 kg

DRUGS (1)
  1. LATUDA [Suspect]
     Indication: SCHIZOPHRENIA
     Dosage: 40MG H.S. P.O.
     Route: 048
     Dates: start: 20110628, end: 20110630

REACTIONS (8)
  - SENSATION OF HEAVINESS [None]
  - CHEST DISCOMFORT [None]
  - HALLUCINATION, AUDITORY [None]
  - HEADACHE [None]
  - VISION BLURRED [None]
  - CHEST PAIN [None]
  - BREAST ENLARGEMENT [None]
  - WEIGHT INCREASED [None]
